FAERS Safety Report 5386230-3 (Version None)
Quarter: 2007Q3

REPORT INFORMATION
  Report Type: 
  Country: None (occurrence: None)
  Receive Date: 20070713
  Receipt Date: 20070704
  Transmission Date: 20080115
  Serious: Yes (Other)
  Sender: FDA-Public Use
  Company Number: PHBS2007IT11475

PATIENT
  Age: 63 Year
  Sex: Male

DRUGS (2)
  1. ZOMETA [Suspect]
     Indication: METASTASES TO BONE
     Dosage: 4 MG/MONTHLY
     Route: 042
     Dates: start: 20070127, end: 20070524
  2. CORTISONE ACETATE [Concomitant]
     Indication: MULTIPLE MYELOMA

REACTIONS (1)
  - OSTEONECROSIS [None]
